FAERS Safety Report 4659254-9 (Version None)
Quarter: 2005Q2

REPORT INFORMATION
  Report Type: 
  Country: None (occurrence: None)
  Receive Date: 20050511
  Receipt Date: 20050504
  Transmission Date: 20051028
  Serious: Yes (Disabling, Congenital Anomaly)
  Sender: FDA-Public Use
  Company Number: US-KINGPHARMUSA00001-K200500586

PATIENT
  Sex: Male
  Weight: 4 kg

DRUGS (6)
  1. DELESTROGEN [Suspect]
     Route: 064
     Dates: start: 20040525, end: 20040630
  2. GLUCOPHAGE [Suspect]
     Route: 064
     Dates: start: 20040525, end: 20040630
  3. VIVALAN ^ICI^ [Suspect]
     Indication: DEPRESSION
     Route: 064
     Dates: start: 20040525, end: 20040630
  4. ANDROCUR [Suspect]
     Dosage: 1 DOSAGE FORM CYCLE, UNK
     Route: 064
     Dates: start: 20040525, end: 20040630
  5. MIXTARD /DEN/ [Concomitant]
  6. ACTRAPID HUMAN [Concomitant]

REACTIONS (3)
  - DRUG EXPOSURE DURING PREGNANCY [None]
  - INDUCED LABOUR [None]
  - SOLITARY KIDNEY [None]
